FAERS Safety Report 9323159 (Version 2)
Quarter: 2015Q2

REPORT INFORMATION
  Report Type: Spontaneous
  Country: US (occurrence: US)
  Receive Date: 20130603
  Receipt Date: 20150501
  Transmission Date: 20150821
  Serious: No
  Sender: FDA-Public Use
  Company Number: US-BIOGENIDEC-2013BI047853

PATIENT
  Age: 42 Year
  Sex: Male

DRUGS (1)
  1. AVONEX [Suspect]
     Active Substance: INTERFERON BETA-1A
     Indication: MULTIPLE SCLEROSIS
     Route: 030
     Dates: start: 20130308, end: 20140701

REACTIONS (8)
  - Bedridden [Unknown]
  - Anxiety [Recovered/Resolved]
  - Abasia [Recovered/Resolved]
  - Night sweats [Not Recovered/Not Resolved]
  - Fall [Recovered/Resolved]
  - Pruritus [Recovered/Resolved]
  - Hypoaesthesia [Not Recovered/Not Resolved]
  - Cold sweat [Recovered/Resolved]

NARRATIVE: CASE EVENT DATE: 20130506
